FAERS Safety Report 8870450 (Version 3)
Quarter: 2013Q1

REPORT INFORMATION
  Report Type: Spontaneous
  Country: US (occurrence: US)
  Receive Date: 20121029
  Receipt Date: 20130226
  Transmission Date: 20140127
  Serious: Yes (Hospitalization, Other)
  Sender: FDA-Public Use
  Company Number: US-AMGEN-USASP2012065452

PATIENT
  Age: 61 Year
  Sex: Male

DRUGS (10)
  1. ENBREL [Suspect]
     Indication: RHEUMATOID ARTHRITIS
     Dosage: 50 MG, QWK
     Route: 058
     Dates: start: 20120130
  2. PROTONIX [Concomitant]
     Indication: GASTROINTESTINAL DISORDER
     Dosage: 40 MG, QD
     Route: 048
  3. MEDRAL [Concomitant]
     Indication: ARTHRITIS
     Dosage: UNK
     Route: 048
  4. HYDROCODONE [Concomitant]
     Dosage: Q2D
     Route: 048
  5. ATIVAN [Concomitant]
     Dosage: 1 GM Q2D
     Route: 048
  6. IMODIUM [Concomitant]
     Dosage: UNK
     Route: 048
  7. LUNESTA [Concomitant]
     Dosage: UNK
     Route: 048
  8. DOLORIDE [Concomitant]
     Indication: ARTHRITIS
     Dosage: UNK UNK, BID
     Route: 048
  9. ALIVIOL                            /00020001/ [Concomitant]
  10. MEDROL                             /00049601/ [Concomitant]
     Indication: ARTHRITIS
     Dosage: 4 G, QD

REACTIONS (13)
  - Cerebrovascular accident [Recovering/Resolving]
  - Embolism [Not Recovered/Not Resolved]
  - Extraocular muscle paresis [Not Recovered/Not Resolved]
  - Aphasia [Not Recovered/Not Resolved]
  - Anal fistula [Not Recovered/Not Resolved]
  - Nausea [Recovered/Resolved]
  - Fatigue [Not Recovered/Not Resolved]
  - Visual field defect [Not Recovered/Not Resolved]
  - Peripheral coldness [Not Recovered/Not Resolved]
  - Pain in extremity [Not Recovered/Not Resolved]
  - Arthralgia [Recovered/Resolved]
  - Vertigo [Recovered/Resolved]
  - Upper respiratory tract infection [Recovered/Resolved]
